FAERS Safety Report 25340896 (Version 1)
Quarter: 2025Q2

REPORT INFORMATION
  Report Type: Spontaneous
  Country: US (occurrence: US)
  Receive Date: 20250521
  Receipt Date: 20250521
  Transmission Date: 20250716
  Serious: No
  Sender: ELI LILLY AND COMPANY
  Company Number: US-ELI_LILLY_AND_COMPANY-US202505016383

PATIENT
  Age: 57 Year
  Sex: Female

DRUGS (4)
  1. ZEPBOUND [Suspect]
     Active Substance: TIRZEPATIDE
     Indication: Dyspnoea
     Route: 058
     Dates: start: 20250511, end: 20250518
  2. ZEPBOUND [Suspect]
     Active Substance: TIRZEPATIDE
     Indication: Dyspnoea
     Route: 058
     Dates: start: 20250511, end: 20250518
  3. ZEPBOUND [Suspect]
     Active Substance: TIRZEPATIDE
     Indication: Dyspnoea
     Route: 058
     Dates: start: 20250511, end: 20250518
  4. ZEPBOUND [Suspect]
     Active Substance: TIRZEPATIDE
     Indication: Dyspnoea
     Route: 058
     Dates: start: 20250511, end: 20250518

REACTIONS (3)
  - Dyspnoea [Not Recovered/Not Resolved]
  - Muscular weakness [Not Recovered/Not Resolved]
  - Off label use [Unknown]

NARRATIVE: CASE EVENT DATE: 20250511
